FAERS Safety Report 14579983 (Version 2)
Quarter: 2018Q2

REPORT INFORMATION
  Report Type: Spontaneous
  Country: JP (occurrence: JP)
  Receive Date: 20180228
  Receipt Date: 20180405
  Transmission Date: 20180711
  Serious: Yes (Other)
  Sender: FDA-Public Use
  Company Number: JP-TAKEDA-2018TJP005295

PATIENT
  Age: 77 Year
  Sex: Female
  Weight: 30 kg

DRUGS (5)
  1. NESINA [Suspect]
     Active Substance: ALOGLIPTIN BENZOATE
     Indication: DIABETES MELLITUS
     Dosage: 12.5 MG, QD
     Route: 048
     Dates: start: 20141030, end: 201704
  2. EDIROL [Concomitant]
     Active Substance: ELDECALCITOL
     Dosage: 0.75 UG, QD
     Route: 048
     Dates: start: 20150409
  3. LIPITOR [Concomitant]
     Active Substance: ATORVASTATIN CALCIUM
     Dosage: 10 MG, QD
     Route: 048
     Dates: start: 20040116
  4. GLIMICRON [Concomitant]
     Active Substance: GLICLAZIDE
     Dosage: 40 MG, QD
     Route: 048
     Dates: start: 20130418
  5. BENET [Concomitant]
     Active Substance: RISEDRONATE SODIUM
     Dosage: 75 MG, MONTHLY
     Route: 048
     Dates: start: 20150409

REACTIONS (1)
  - Pemphigoid [Recovering/Resolving]

NARRATIVE: CASE EVENT DATE: 20160630
